FAERS Safety Report 5013651-0 (Version None)
Quarter: 2006Q2

REPORT INFORMATION
  Report Type: 
  Country: None (occurrence: None)
  Receive Date: 20060530
  Receipt Date: 20060524
  Transmission Date: 20061013
  Serious: Yes (Hospitalization)
  Sender: FDA-Public Use
  Company Number: FR-GLAXOSMITHKLINE-B0425005A

PATIENT
  Age: 96 Year
  Sex: Female

DRUGS (2)
  1. ZELITREX [Suspect]
     Indication: HERPES ZOSTER
     Route: 048
     Dates: start: 20060301, end: 20060301
  2. PREVISCAN [Concomitant]

REACTIONS (4)
  - DIFFICULTY IN WALKING [None]
  - HALLUCINATION, VISUAL [None]
  - OVERDOSE [None]
  - SOMNOLENCE [None]
